FAERS Safety Report 5033754-4 (Version None)
Quarter: 2006Q2

REPORT INFORMATION
  Report Type: 
  Country: None (occurrence: None)
  Receive Date: 20060623
  Receipt Date: 20060531
  Transmission Date: 20061013
  Serious: Yes (Hospitalization)
  Sender: FDA-Public Use
  Company Number: 2006AP02516

PATIENT
  Age: 79 Year
  Sex: Female

DRUGS (3)
  1. MARCAINE [Suspect]
     Indication: SPINAL ANAESTHESIA
     Route: 037
  2. FENTANYL CITRATE [Concomitant]
     Dosage: GIVEN AFTER MARCAIN STARTED BEFORE EVENT DEVELOPED
  3. ASPIRIN [Concomitant]
     Indication: CALCULUS URETERIC
     Dosage: STARTED 20 YEARS AGO, STOPPED 7 DAYS BEFORE TRANSURETHRAL URETERO LITHTRIPSY
     Route: 048
     Dates: end: 20050101

REACTIONS (7)
  - ANGINA PECTORIS [None]
  - CHEST PAIN [None]
  - ELECTROCARDIOGRAM ST SEGMENT DEPRESSION [None]
  - FEELING ABNORMAL [None]
  - HYPERTENSION [None]
  - NAUSEA [None]
  - TACHYCARDIA [None]
